FAERS Safety Report 5580009-5 (Version None)
Quarter: 2007Q4

REPORT INFORMATION
  Report Type: 
  Country: None (occurrence: None)
  Receive Date: 20071227
  Receipt Date: 20071227
  Transmission Date: 20080405
  Serious: Yes (Other)
  Sender: FDA-Public Use
  Company Number: None

PATIENT
  Age: 54 Year
  Sex: Female
  Weight: 119.7496 kg

DRUGS (1)
  1. FLEET PHOSPHASODA [Suspect]
     Indication: COLONOSCOPY
     Dosage: RECTAL
     Route: 054
     Dates: start: 20070405, end: 20070407

REACTIONS (2)
  - BLOOD CREATININE INCREASED [None]
  - NEPHROPATHY [None]
